FAERS Safety Report 5754802-X (Version None)
Quarter: 2008Q2

REPORT INFORMATION
  Report Type: 
  Country: None (occurrence: None)
  Receive Date: 20080527
  Receipt Date: 20080515
  Transmission Date: 20081010
  Serious: Yes (Death)
  Sender: FDA-Public Use
  Company Number: 163-21880-08050909

PATIENT
  Age: 64 Year
  Sex: Male

DRUGS (1)
  1. REVLIMID [Suspect]
     Indication: DRUG USE FOR UNKNOWN INDICATION
     Dosage: 25 MG, 1 IN 1 D, ORAL
     Route: 048
     Dates: start: 20080410, end: 20080401

REACTIONS (1)
  - DEATH [None]
